FAERS Safety Report 8031365 (Version 7)
Quarter: 2012Q4

REPORT INFORMATION
  Report Type: 
  Country: US (occurrence: US)
  Receive Date: 20110712
  Receipt Date: 20120905
  Transmission Date: 20130627
  Serious: Yes (Hospitalization, Other)
  Sender: FDA-Public Use
  Company Number: US-009507513-1107USA01266

PATIENT

DRUGS (3)
  1. FOSAMAX [Suspect]
     Indication: OSTEOPOROSIS
     Dosage: UNK
     Route: 048
     Dates: start: 199910, end: 201010
  2. FOSAMAX [Suspect]
     Indication: OSTEOPENIA
     Dosage: 70 mg, QW
     Route: 048
     Dates: end: 201009
  3. PRILOSEC [Concomitant]
     Indication: GASTROOESOPHAGEAL REFLUX DISEASE
     Dosage: 40 mg, qd
     Route: 048
     Dates: start: 19850101

REACTIONS (64)
  - Ligament sprain [Unknown]
  - Osteopenia [Unknown]
  - Enthesopathy [Unknown]
  - Fatigue [Unknown]
  - Night sweats [Unknown]
  - Muscular weakness [Unknown]
  - Stress urinary incontinence [Unknown]
  - Oral herpes [Unknown]
  - Anxiety [Unknown]
  - Myositis [Unknown]
  - Depression [Unknown]
  - Paraesthesia [Unknown]
  - Nasopharyngitis [Unknown]
  - Pleurisy [Unknown]
  - Type IV hypersensitivity reaction [Unknown]
  - Xeroderma [Unknown]
  - Adverse drug reaction [Unknown]
  - Exostosis [Unknown]
  - Spondylitis [Unknown]
  - Haemorrhoids [Unknown]
  - Intestinal mass [Unknown]
  - Rectal polyp [Unknown]
  - Levator syndrome [Unknown]
  - Anal spasm [Unknown]
  - Urinary tract infection [Not Recovered/Not Resolved]
  - Hypertonic bladder [Unknown]
  - Eczema [Unknown]
  - Foreign body sensation in eyes [Unknown]
  - Cystitis noninfective [Not Recovered/Not Resolved]
  - Hypotension [Unknown]
  - Hypokalaemia [Unknown]
  - Limb injury [Unknown]
  - Contusion [Unknown]
  - Fall [Unknown]
  - Bone disorder [Unknown]
  - Ulna fracture [Unknown]
  - Contusion [Unknown]
  - Bursitis [Unknown]
  - Sleep apnoea syndrome [Unknown]
  - Nystagmus [Unknown]
  - Eczema [Unknown]
  - Oedema peripheral [Unknown]
  - Dizziness [Unknown]
  - Drug ineffective [Unknown]
  - Muscle spasms [Unknown]
  - Pyrexia [Unknown]
  - Abdominal distension [Unknown]
  - Headache [Unknown]
  - Flatulence [Unknown]
  - Back pain [Unknown]
  - Myalgia [Unknown]
  - Musculoskeletal chest pain [Unknown]
  - Femur fracture [Unknown]
  - Ankle fracture [Unknown]
  - Radius fracture [Unknown]
  - Hypertension [Unknown]
  - Carpal tunnel syndrome [Unknown]
  - Arthritis [Unknown]
  - Sciatica [Not Recovered/Not Resolved]
  - Soft tissue disorder [Unknown]
  - Bone cyst [Unknown]
  - Chondromalacia [Unknown]
  - Bursitis [Unknown]
  - Iliotibial band syndrome [Unknown]
